FAERS Safety Report 5466755-2 (Version None)
Quarter: 2007Q3

REPORT INFORMATION
  Report Type: 
  Country: None (occurrence: None)
  Receive Date: 20070925
  Receipt Date: 20070911
  Transmission Date: 20080115
  Serious: No
  Sender: FDA-Public Use
  Company Number: US-ELI_LILLY_AND_COMPANY-US200709002095

PATIENT
  Age: 16 Year
  Sex: Male

DRUGS (4)
  1. OLANZAPINE [Suspect]
     Indication: PSYCHOTIC DISORDER
     Dosage: 5 MG, DAILY (1/D)
     Dates: start: 20070901
  2. OLANZAPINE [Suspect]
     Dosage: 25 MG, DAILY (1/D)
  3. OLANZAPINE [Suspect]
     Dosage: 20 MG, DAILY (1/D)
  4. SEROQUEL [Concomitant]
     Dosage: 100 MG, 2/D

REACTIONS (2)
  - EPISTAXIS [None]
  - OVERDOSE [None]
